FAERS Safety Report 20814282 (Version 1)
Quarter: 2022Q2

REPORT INFORMATION
  Report Type: Spontaneous
  Country: None (occurrence: ES)
  Receive Date: 20220511
  Receipt Date: 20220511
  Transmission Date: 20220721
  Serious: Yes (Hospitalization)
  Sender: FDA-Public Use
  Company Number: ES-B.Braun Medical Inc.-2128676

PATIENT
  Age: 30 Year
  Sex: Male

DRUGS (3)
  1. ACETAMINOPHEN [Suspect]
     Active Substance: ACETAMINOPHEN
  2. AMOXICILLIN\CLAVULANIC ACID [Suspect]
     Active Substance: AMOXICILLIN\CLAVULANIC ACID
  3. IBUPROFEN [Suspect]
     Active Substance: IBUPROFEN

REACTIONS (3)
  - Acute hepatic failure [Unknown]
  - Hyperamylasaemia [Unknown]
  - Toxic epidermal necrolysis [Unknown]
